FAERS Safety Report 15686343 (Version 1)
Quarter: 2018Q4

REPORT INFORMATION
  Report Type: Spontaneous
  Country: RU (occurrence: RU)
  Receive Date: 20181204
  Receipt Date: 20181204
  Transmission Date: 20190205
  Serious: Yes (Hospitalization)
  Sender: FDA-Public Use
  Company Number: RU-ARALEZ PHARMACEUTICALS R+D INC.-2018-ARA-003075

PATIENT
  Age: 37 Year
  Sex: Male
  Weight: 97 kg

DRUGS (2)
  1. METOPROLOL SUCCINATE. [Suspect]
     Active Substance: METOPROLOL SUCCINATE
     Indication: HEART RATE DECREASED
     Dosage: 25 MG, QD
     Route: 048
     Dates: start: 201711
  2. BRILINTA [Suspect]
     Active Substance: TICAGRELOR
     Indication: MYOCARDIAL INFARCTION
     Dosage: 90 MG, BID
     Route: 048
     Dates: start: 201711

REACTIONS (9)
  - Dyspnoea [Recovering/Resolving]
  - Eructation [Recovering/Resolving]
  - Gastric disorder [Not Recovered/Not Resolved]
  - Abdominal distension [Unknown]
  - Insomnia [Recovered/Resolved]
  - Hepatomegaly [Unknown]
  - Nasopharyngitis [Recovering/Resolving]
  - Myocardial infarction [Recovered/Resolved]
  - Generalised oedema [Recovered/Resolved]

NARRATIVE: CASE EVENT DATE: 2018
